FAERS Safety Report 13817564 (Version 1)
Quarter: 2017Q3

REPORT INFORMATION
  Report Type: Spontaneous
  Country: MA (occurrence: MA)
  Receive Date: 20170731
  Receipt Date: 20170731
  Transmission Date: 20171127
  Serious: Yes (Other)
  Sender: FDA-Public Use
  Company Number: MA-BAUSCH-BL-2017-022828

PATIENT
  Age: 43 Year
  Sex: Male

DRUGS (3)
  1. L-ASPARAGINASE [Concomitant]
     Active Substance: ASPARAGINASE
     Indication: ANGIOCENTRIC LYMPHOMA
     Dosage: 6000 IU/M2 (D2, D4, D6, D8)
  2. METHOTREXATE. [Concomitant]
     Active Substance: METHOTREXATE
     Indication: ANGIOCENTRIC LYMPHOMA
     Dosage: D1
  3. DEXAMETHASONE. [Suspect]
     Active Substance: DEXAMETHASONE
     Indication: ANGIOCENTRIC LYMPHOMA
     Dosage: PER DAY (D1-D4)
     Route: 065

REACTIONS (1)
  - Diabetes mellitus [Unknown]
